FAERS Safety Report 4780420-6 (Version None)
Quarter: 2005Q3

REPORT INFORMATION
  Report Type: 
  Country: None (occurrence: None)
  Receive Date: 20050927
  Receipt Date: 20050210
  Transmission Date: 20060218
  Serious: Yes (Other)
  Sender: FDA-Public Use
  Company Number: US-BRISTOL-MYERS SQUIBB COMPANY-12860953

PATIENT
  Age: 56 Year
  Sex: Female

DRUGS (8)
  1. ESTRACE [Suspect]
     Indication: HORMONE REPLACEMENT THERAPY
     Dates: start: 19940410
  2. PROVERA [Suspect]
     Indication: HORMONE REPLACEMENT THERAPY
  3. PREMARIN [Suspect]
     Indication: HORMONE REPLACEMENT THERAPY
  4. SELENIUM SULFIDE [Concomitant]
  5. ASCORBIC ACID [Concomitant]
  6. VITAMIN E [Concomitant]
  7. VITAMIN B6 [Concomitant]
  8. CALCIUM GLUCONATE [Concomitant]

REACTIONS (2)
  - ALOPECIA EFFLUVIUM [None]
  - BREAST CANCER [None]
